FAERS Safety Report 9337687 (Version 2)
Quarter: 2013Q4

REPORT INFORMATION
  Report Type: Spontaneous
  Country: US (occurrence: US)
  Receive Date: 20130607
  Receipt Date: 20131119
  Transmission Date: 20140711
  Serious: Yes (Hospitalization, Other)
  Sender: FDA-Public Use
  Company Number: US-B.I. PHARMACEUTICALS,INC./RIDGEFIELD-2013-BI-15936BP

PATIENT
  Age: 69 Year
  Sex: Female
  Weight: 56.25 kg

DRUGS (18)
  1. PRADAXA [Suspect]
     Indication: ANTICOAGULANT THERAPY
     Dosage: 300 MG
     Route: 048
     Dates: start: 20111027, end: 20120319
  2. PREDNISONE [Concomitant]
  3. ASPIRIN [Concomitant]
  4. CELLCEPT [Concomitant]
  5. CALCITRIOL [Concomitant]
  6. AMIODARONE [Concomitant]
  7. GABAPENTIN [Concomitant]
  8. VITAMIN B COMPLEX [Concomitant]
  9. MIRALAX [Concomitant]
  10. VITAMIN D [Concomitant]
  11. SIMVASTATIN [Concomitant]
  12. PROGRAF [Concomitant]
  13. TRAMADOL [Concomitant]
  14. AMBIEN [Concomitant]
  15. LISINOPRIL [Concomitant]
  16. SPIRONOLACTONE [Concomitant]
  17. METOPROLOL TARTRATE [Concomitant]
  18. LASIX [Concomitant]

REACTIONS (6)
  - Perirenal haematoma [Unknown]
  - Septic shock [Unknown]
  - Shock haemorrhagic [Unknown]
  - Renal failure acute [Unknown]
  - Anaemia [Unknown]
  - Hypoglycaemia [Unknown]
